FAERS Safety Report 24125723 (Version 1)
Quarter: 2024Q3

REPORT INFORMATION
  Report Type: Spontaneous
  Country: AU (occurrence: AU)
  Receive Date: 20240723
  Receipt Date: 20240723
  Transmission Date: 20241016
  Serious: Yes (Other)
  Sender: ACCORD
  Company Number: None

PATIENT
  Age: 59 Year
  Sex: Male

DRUGS (7)
  1. METHOTREXATE [Suspect]
     Active Substance: METHOTREXATE
     Indication: Product used for unknown indication
  2. STELARA [Suspect]
     Active Substance: USTEKINUMAB
  3. VEDOLIZUMAB [Suspect]
     Active Substance: VEDOLIZUMAB
  4. CREON [Concomitant]
     Active Substance: PANCRELIPASE AMYLASE\PANCRELIPASE LIPASE\PANCRELIPASE PROTEASE
  5. ERGOCALCIFEROL [Concomitant]
     Active Substance: ERGOCALCIFEROL
  6. PREDNISONE [Concomitant]
     Active Substance: PREDNISONE
  7. THIOGUANINE ANHYDROUS [Concomitant]
     Active Substance: THIOGUANINE ANHYDROUS

REACTIONS (1)
  - Crohn^s disease [Unknown]
